FAERS Safety Report 17809815 (Version 1)
Quarter: 2020Q2

REPORT INFORMATION
  Report Type: Spontaneous
  Country: NL (occurrence: NL)
  Receive Date: 20200520
  Receipt Date: 20200520
  Transmission Date: 20200714
  Serious: Yes (Other)
  Sender: FDA-Public Use
  Company Number: NL-SPI-2020-US-000021

PATIENT
  Sex: Female

DRUGS (1)
  1. PAROXETINE. [Suspect]
     Active Substance: PAROXETINE
     Route: 048

REACTIONS (3)
  - Atrioventricular block second degree [Unknown]
  - Exposure during pregnancy [Unknown]
  - Electrocardiogram QT prolonged [Unknown]
